FAERS Safety Report 7466072-5 (Version None)
Quarter: 2011Q2

REPORT INFORMATION
  Report Type: 
  Country: None (occurrence: None)
  Receive Date: 20110509
  Receipt Date: 20100616
  Transmission Date: 20111010
  Serious: No
  Sender: FDA-Public Use
  Company Number: US-ALEXION-A201000696

PATIENT
  Sex: Male

DRUGS (1)
  1. SOLIRIS [Suspect]
     Indication: PAROXYSMAL NOCTURNAL HAEMOGLOBINURIA
     Dosage: Q3WKS
     Route: 042
     Dates: end: 20100901

REACTIONS (7)
  - BLOOD CREATININE INCREASED [None]
  - PLATELET COUNT DECREASED [None]
  - HEPATOMEGALY [None]
  - GASTRITIS [None]
  - ABDOMINAL DISCOMFORT [None]
  - BLOOD UREA INCREASED [None]
  - PAIN [None]
